FAERS Safety Report 5711233-6 (Version None)
Quarter: 2008Q2

REPORT INFORMATION
  Report Type: 
  Country: None (occurrence: None)
  Receive Date: 20080414
  Receipt Date: 20080327
  Transmission Date: 20081010
  Serious: Yes (Hospitalization)
  Sender: FDA-Public Use
  Company Number: 8031461

PATIENT
  Age: 70 Year
  Sex: Female

DRUGS (43)
  1. XYZALL /001530201/ [Suspect]
     Dates: start: 20070801
  2. ATARAX [Suspect]
     Indication: ANXIETY
     Dosage: 2 DF 1/D PO
     Route: 048
     Dates: start: 20070803, end: 20070812
  3. ATARAX [Suspect]
     Indication: DYSPNOEA
     Dosage: 2 DF 1/D PO
     Route: 048
     Dates: start: 20070803, end: 20070812
  4. ATARAX [Suspect]
     Indication: INSOMNIA
     Dosage: 2 DF 1/D PO
     Route: 048
     Dates: start: 20070803, end: 20070812
  5. ATARAX [Suspect]
     Indication: ANXIETY
     Dosage: 1 DF/ 1/D PO
     Route: 048
     Dates: start: 20070813, end: 20070905
  6. ATARAX [Suspect]
     Indication: DYSPNOEA
     Dosage: 1 DF/ 1/D PO
     Route: 048
     Dates: start: 20070813, end: 20070905
  7. ATARAX [Suspect]
     Indication: INSOMNIA
     Dosage: 1 DF/ 1/D PO
     Route: 048
     Dates: start: 20070813, end: 20070905
  8. XANAX [Suspect]
     Indication: ANXIETY
     Dosage: 0.25 MG 1/D PO
     Route: 048
     Dates: start: 20070801, end: 20070806
  9. XANAX [Suspect]
     Indication: DYSPNOEA
     Dosage: 0.25 MG 1/D PO
     Route: 048
     Dates: start: 20070801, end: 20070806
  10. XANAX [Suspect]
     Indication: INSOMNIA
     Dosage: 0.25 MG 1/D PO
     Route: 048
     Dates: start: 20070801, end: 20070806
  11. XANAX [Suspect]
     Indication: ANXIETY
     Dosage: 0.5 MG 1/D PO
     Route: 048
     Dates: start: 20070807, end: 20070807
  12. XANAX [Suspect]
     Indication: DYSPNOEA
     Dosage: 0.5 MG 1/D PO
     Route: 048
     Dates: start: 20070807, end: 20070807
  13. XANAX [Suspect]
     Indication: INSOMNIA
     Dosage: 0.5 MG 1/D PO
     Route: 048
     Dates: start: 20070807, end: 20070807
  14. XANAX [Suspect]
     Indication: ANXIETY
     Dosage: 0.75 MG 1/D PO
     Route: 048
     Dates: start: 20070808, end: 20070810
  15. XANAX [Suspect]
     Indication: DYSPNOEA
     Dosage: 0.75 MG 1/D PO
     Route: 048
     Dates: start: 20070808, end: 20070810
  16. XANAX [Suspect]
     Indication: INSOMNIA
     Dosage: 0.75 MG 1/D PO
     Route: 048
     Dates: start: 20070808, end: 20070810
  17. XANAX [Suspect]
     Indication: ANXIETY
     Dosage: 1 MG 1/D PO
     Route: 048
     Dates: start: 20070811, end: 20070905
  18. XANAX [Suspect]
     Indication: DYSPNOEA
     Dosage: 1 MG 1/D PO
     Route: 048
     Dates: start: 20070811, end: 20070905
  19. XANAX [Suspect]
     Indication: INSOMNIA
     Dosage: 1 MG 1/D PO
     Route: 048
     Dates: start: 20070811, end: 20070905
  20. IMOVANE [Suspect]
     Indication: ANXIETY
     Dosage: 7.5 MG 1/D PO
     Route: 048
     Dates: start: 20070801, end: 20070905
  21. IMOVANE [Suspect]
     Indication: DYSPNOEA
     Dosage: 7.5 MG 1/D PO
     Route: 048
     Dates: start: 20070801, end: 20070905
  22. IMOVANE [Suspect]
     Indication: INSOMNIA
     Dosage: 7.5 MG 1/D PO
     Route: 048
     Dates: start: 20070801, end: 20070905
  23. EQUANIL [Suspect]
     Indication: ANXIETY
     Dosage: 400 MG 2/D PO
     Route: 048
     Dates: start: 20070828, end: 20070830
  24. EQUANIL [Suspect]
     Indication: DYSPNOEA
     Dosage: 400 MG 2/D PO
     Route: 048
     Dates: start: 20070828, end: 20070830
  25. EQUANIL [Suspect]
     Indication: INSOMNIA
     Dosage: 400 MG 2/D PO
     Route: 048
     Dates: start: 20070828, end: 20070830
  26. EQUANIL [Suspect]
     Indication: ANXIETY
     Dosage: 400 MG 3/D PO
     Route: 048
     Dates: start: 20070831, end: 20070831
  27. EQUANIL [Suspect]
     Indication: DYSPNOEA
     Dosage: 400 MG 3/D PO
     Route: 048
     Dates: start: 20070831, end: 20070831
  28. EQUANIL [Suspect]
     Indication: INSOMNIA
     Dosage: 400 MG 3/D PO
     Route: 048
     Dates: start: 20070831, end: 20070831
  29. EQUANIL [Suspect]
     Indication: ANXIETY
     Dosage: 400 MG 2/D PO
     Route: 048
     Dates: start: 20070901, end: 20070905
  30. EQUANIL [Suspect]
     Indication: DYSPNOEA
     Dosage: 400 MG 2/D PO
     Route: 048
     Dates: start: 20070901, end: 20070905
  31. EQUANIL [Suspect]
     Indication: INSOMNIA
     Dosage: 400 MG 2/D PO
     Route: 048
     Dates: start: 20070901, end: 20070905
  32. TRANXENE [Suspect]
     Indication: ANXIETY
     Dosage: 20 MG 1/D IV
     Route: 042
     Dates: start: 20070831, end: 20070905
  33. TRANXENE [Suspect]
     Indication: DYSPNOEA
     Dosage: 20 MG 1/D IV
     Route: 042
     Dates: start: 20070831, end: 20070905
  34. TRANXENE [Suspect]
     Indication: INSOMNIA
     Dosage: 20 MG 1/D IV
     Route: 042
     Dates: start: 20070831, end: 20070905
  35. ATHYMIL [Suspect]
     Indication: ANXIETY
     Dosage: 30 M G 1/D PO
     Route: 048
     Dates: start: 20070831, end: 20070905
  36. ATHYMIL [Suspect]
     Indication: DYSPNOEA
     Dosage: 30 M G 1/D PO
     Route: 048
     Dates: start: 20070831, end: 20070905
  37. ATHYMIL [Suspect]
     Indication: INSOMNIA
     Dosage: 30 M G 1/D PO
     Route: 048
     Dates: start: 20070831, end: 20070905
  38. PREVISCAN [Concomitant]
  39. LAMALINE [Concomitant]
  40. LASILIX [Concomitant]
  41. ALDACTONE [Concomitant]
  42. OGAST [Concomitant]
  43. CIBACALCINE [Concomitant]

REACTIONS (6)
  - AGITATION [None]
  - BLOOD SODIUM DECREASED [None]
  - CARDIAC FAILURE [None]
  - COMA [None]
  - INTERNATIONAL NORMALISED RATIO INCREASED [None]
  - URINARY TRACT INFECTION [None]
